FAERS Safety Report 20414781 (Version 1)
Quarter: 2022Q1

REPORT INFORMATION
  Report Type: Spontaneous
  Country: US (occurrence: US)
  Receive Date: 20220202
  Receipt Date: 20220202
  Transmission Date: 20220423
  Serious: Yes (Other)
  Sender: FDA-Public Use
  Company Number: US-OCTA-LIT00822US

PATIENT
  Age: 64 Year
  Sex: Male

DRUGS (1)
  1. HUMAN IMMUNOGLOBULIN G [Suspect]
     Active Substance: HUMAN IMMUNOGLOBULIN G
     Indication: Ocular pemphigoid
     Dosage: 2 CYCLES
     Route: 042
     Dates: start: 201909, end: 201910

REACTIONS (3)
  - Misleading laboratory test result [Recovered/Resolved]
  - Hepatitis B surface antibody positive [Recovered/Resolved]
  - Hepatitis B core antibody positive [Recovered/Resolved]

NARRATIVE: CASE EVENT DATE: 20190101
